FAERS Safety Report 9559546 (Version 1)
Quarter: 2013Q3

REPORT INFORMATION
  Report Type: Spontaneous
  Country: US (occurrence: None)
  Receive Date: 20130925
  Receipt Date: 20130925
  Transmission Date: 20140515
  Serious: Yes (Other)
  Sender: FDA-Public Use
  Company Number: SYM-2013-10831

PATIENT
  Age: 43 Year
  Sex: Female

DRUGS (6)
  1. CERAVE MOISTURIZING LOTION [Suspect]
     Indication: DRY SKIN
     Dosage: PAST 4 YEARS- ONGOING 2 IN 1 D, TOPICAL
     Route: 061
  2. CERAVE FACIAL MOISTURIZING LOTION AM [Suspect]
     Dosage: PAST 4 YEARS- ONGOING 1 IN 1 D, TOPICAL
     Route: 061
  3. CERAVE FACIAL MOISTURIZNG LOTION PM [Suspect]
     Dosage: PAST 4 YEARS- ONGOING 1 IN 1 D, TOPICAL
     Route: 061
  4. CERAVE SA RENEWING LOTION [Suspect]
     Dosage: PAST 4 YEARS- ONGOING ONCE DAILY TWICE WEEKLY, TOPICAL
  5. CERAVE WET SKIN SPRAY SPF 50 (OTHER THERAPEUTIC PRODUCTS) (SPRAY) (NULL) [Suspect]
     Dosage: PAST 4 YEARS - ONGOING AS NEEDED USUALLY DURING THE SUMMER TOPICAL
  6. BIRTH CONTROL PILLS (CONTRACEPTIVES) (NULL) [Concomitant]

REACTIONS (2)
  - Hypersensitivity [None]
  - Skin cancer [None]
